FAERS Safety Report 10994861 (Version 1)
Quarter: 2015Q2

REPORT INFORMATION
  Report Type: Report from Study
  Country: US (occurrence: US)
  Receive Date: 20150407
  Receipt Date: 20150407
  Transmission Date: 20150821
  Serious: Yes (Other)
  Sender: FDA-Public Use
  Company Number: PHEH2015US006272

PATIENT
  Sex: Female

DRUGS (2)
  1. GILENYA [Suspect]
     Active Substance: FINGOLIMOD HYDROCHLORIDE
     Indication: PRODUCT USED FOR UNKNOWN INDICATION
     Dosage: 0.5 MG, QD
     Route: 048
  2. BACLOFEN. [Concomitant]
     Active Substance: BACLOFEN
     Indication: PRODUCT USED FOR UNKNOWN INDICATION
     Route: 065

REACTIONS (32)
  - Muscle rigidity [Unknown]
  - Loss of bladder sensation [Unknown]
  - Vision blurred [Unknown]
  - Restless legs syndrome [Unknown]
  - Insomnia [Unknown]
  - Colour blindness [Unknown]
  - Movement disorder [Unknown]
  - Gait disturbance [Unknown]
  - Somnolence [Unknown]
  - Arthralgia [Unknown]
  - Hypoaesthesia [Unknown]
  - Ataxia [Unknown]
  - Libido decreased [Unknown]
  - Tinnitus [Unknown]
  - Vertigo [Unknown]
  - Urticaria [Unknown]
  - Muscle spasticity [Unknown]
  - Cerebellar syndrome [Unknown]
  - Memory impairment [Unknown]
  - Influenza like illness [Unknown]
  - Hot flush [Unknown]
  - Tremor [Unknown]
  - Constipation [Unknown]
  - Headache [Unknown]
  - Abdominal pain upper [Unknown]
  - Decreased vibratory sense [Unknown]
  - Paraesthesia [Unknown]
  - Neck pain [Unknown]
  - Facial paresis [Unknown]
  - Dysarthria [Unknown]
  - Anxiety [Unknown]
  - Back pain [Unknown]
